FAERS Safety Report 13820785 (Version 2)
Quarter: 2017Q3

REPORT INFORMATION
  Report Type: Report from Study
  Country: BR (occurrence: BR)
  Receive Date: 20170801
  Receipt Date: 20170804
  Transmission Date: 20171127
  Serious: Yes (Death)
  Sender: FDA-Public Use
  Company Number: BR-ROCHE-1972005

PATIENT
  Sex: Female

DRUGS (3)
  1. TORLOS [Concomitant]
     Indication: HYPERTENSION
     Route: 048
  2. XOLAIR [Suspect]
     Active Substance: OMALIZUMAB
     Indication: LUNG DISORDER
     Dosage: (2 EVERY 15 DAYS)
     Route: 065
  3. VANNAIR [Concomitant]
     Active Substance: BUDESONIDE\FORMOTEROL FUMARATE DIHYDRATE
     Indication: LUNG DISORDER
     Dosage: 2 ASPIRATIONS
     Route: 055

REACTIONS (2)
  - Off label use [Fatal]
  - Cerebrovascular accident [Fatal]
